FAERS Safety Report 20176711 (Version 1)
Quarter: 2021Q4

REPORT INFORMATION
  Report Type: Spontaneous
  Country: US (occurrence: US)
  Receive Date: 20211213
  Receipt Date: 20211213
  Transmission Date: 20220303
  Serious: No
  Sender: FDA-Public Use
  Company Number: US-JNJFOC-20211148350

PATIENT
  Age: 3 Decade

DRUGS (1)
  1. MENS ROGAINE [Suspect]
     Active Substance: MINOXIDIL
     Indication: Product used for unknown indication
     Dosage: USED TO PUT GLOBS ON SCALP EVERYDAY
     Route: 061

REACTIONS (3)
  - Chest pain [Recovered/Resolved]
  - Pleurisy [Recovered/Resolved]
  - Incorrect dose administered [Unknown]
